FAERS Safety Report 21699759 (Version 2)
Quarter: 2023Q1

REPORT INFORMATION
  Report Type: Spontaneous
  Country: US (occurrence: US)
  Receive Date: 20221208
  Receipt Date: 20230104
  Transmission Date: 20230418
  Serious: No
  Sender: FDA-Public Use
  Company Number: US-PFIZER INC-202201350362

PATIENT
  Age: 66 Year
  Sex: Male
  Weight: 95.238 kg

DRUGS (7)
  1. PAXLOVID [Interacting]
     Active Substance: NIRMATRELVIR\RITONAVIR
     Indication: COVID-19 treatment
     Dosage: 300MG/100MG, 2X/DAY
     Route: 048
     Dates: start: 20221201, end: 20221203
  2. FLOMAX [Interacting]
     Active Substance: TAMSULOSIN HYDROCHLORIDE
     Indication: Benign prostatic hyperplasia
     Dosage: 0.4 MG, DAILY
     Route: 048
     Dates: start: 20210825
  3. CIALIS [Interacting]
     Active Substance: TADALAFIL
     Indication: Erectile dysfunction
     Dosage: 5 MG, DAILY
     Route: 048
     Dates: start: 20190820
  4. ASPIRIN [Concomitant]
     Active Substance: ASPIRIN
     Indication: Prophylaxis
     Dosage: 81 MG, DAILY
     Route: 048
     Dates: start: 20210618
  5. GABAPENTIN [Concomitant]
     Active Substance: GABAPENTIN
     Indication: Neuropathy peripheral
     Dosage: 100 MG, 3X/DAY
     Dates: start: 20220822
  6. ALPRAZOLAM [Concomitant]
     Active Substance: ALPRAZOLAM
     Indication: Anxiety
     Dosage: 0.5 MG, 2X/DAY
     Dates: start: 20160914, end: 20220822
  7. LORAZEPAM [Concomitant]
     Active Substance: LORAZEPAM
     Indication: Anxiety
     Dosage: 0.5 MG, DAILY
     Dates: start: 20221203

REACTIONS (3)
  - Labelled drug-drug interaction medication error [Recovered/Resolved]
  - Ventricular extrasystoles [Recovered/Resolved]
  - Disease progression [Recovered/Resolved]

NARRATIVE: CASE EVENT DATE: 20221202
